FAERS Safety Report 20392933 (Version 4)
Quarter: 2022Q1

REPORT INFORMATION
  Report Type: Spontaneous
  Country: AT (occurrence: AT)
  Receive Date: 20220128
  Receipt Date: 20220322
  Transmission Date: 20220423
  Serious: Yes (Other)
  Sender: FDA-Public Use
  Company Number: AT-BoehringerIngelheim-2022-BI-150757

PATIENT
  Sex: Male
  Weight: 70 kg

DRUGS (1)
  1. SYNJARDY [Suspect]
     Active Substance: EMPAGLIFLOZIN\METFORMIN HYDROCHLORIDE
     Indication: Type 2 diabetes mellitus
     Dosage: 5MG /1000 MG; 1-0-1
     Dates: start: 202104

REACTIONS (2)
  - Renal abscess [Recovered/Resolved]
  - Urinary tract infection [Unknown]
